FAERS Safety Report 9946635 (Version 1)
Quarter: 2014Q1

REPORT INFORMATION
  Report Type: Report from Study
  Country: US (occurrence: US)
  Receive Date: 20140303
  Receipt Date: 20140303
  Transmission Date: 20141002
  Serious: No
  Sender: FDA-Public Use
  Company Number: US-ABBVIE-13P-163-1062952-00

PATIENT
  Age: 54 Year
  Sex: Male
  Weight: 102.15 kg

DRUGS (1)
  1. HUMIRA [Suspect]
     Indication: RHEUMATOID ARTHRITIS
     Dates: start: 2007

REACTIONS (2)
  - Pyrexia [Recovered/Resolved]
  - Lower respiratory tract infection [Recovered/Resolved]
